FAERS Safety Report 16221869 (Version 4)
Quarter: 2020Q2

REPORT INFORMATION
  Report Type: Spontaneous
  Country: US (occurrence: US)
  Receive Date: 20190422
  Receipt Date: 20200514
  Transmission Date: 20200713
  Serious: Yes (Hospitalization, Other)
  Sender: FDA-Public Use
  Company Number: US-B.I. PHARMACEUTICALS,INC./RIDGEFIELD-2019-BI-017894

PATIENT
  Age: 76 Year
  Sex: Female
  Weight: 60.3 kg

DRUGS (33)
  1. MIRAPEX [Suspect]
     Active Substance: PRAMIPEXOLE DIHYDROCHLORIDE
     Indication: RESTLESS LEGS SYNDROME
     Route: 065
  2. IMMUNOGLOBULIN I.V [Suspect]
     Active Substance: HUMAN IMMUNOGLOBULIN G
     Indication: MYASTHENIC SYNDROME
  3. XANAX [Concomitant]
     Active Substance: ALPRAZOLAM
     Indication: PRODUCT USED FOR UNKNOWN INDICATION
     Route: 065
  4. FOLIVANE-F [Concomitant]
     Indication: SUPPLEMENTATION THERAPY
     Route: 065
  5. GABAPENTIN. [Concomitant]
     Active Substance: GABAPENTIN
     Indication: PRODUCT USED FOR UNKNOWN INDICATION
     Route: 065
  6. VESICARE [Concomitant]
     Active Substance: SOLIFENACIN SUCCINATE
     Indication: PRODUCT USED FOR UNKNOWN INDICATION
     Route: 065
  7. FIRDAPSE [Suspect]
     Active Substance: AMIFAMPRIDINE
     Route: 048
     Dates: start: 2019, end: 2019
  8. FIRDAPSE [Suspect]
     Active Substance: AMIFAMPRIDINE
     Route: 048
  9. ARMOUR THYROID [Suspect]
     Active Substance: THYROID, PORCINE
     Route: 065
     Dates: start: 20200318
  10. PAROXETINE. [Concomitant]
     Active Substance: PAROXETINE
     Indication: PRODUCT USED FOR UNKNOWN INDICATION
     Route: 065
  11. FIRDAPSE [Suspect]
     Active Substance: AMIFAMPRIDINE
     Route: 048
     Dates: start: 2019
  12. PREDNISONE. [Suspect]
     Active Substance: PREDNISONE
     Indication: AUTOIMMUNE DISORDER
     Route: 065
  13. LEVOTHYROXINE. [Concomitant]
     Active Substance: LEVOTHYROXINE
     Indication: PRODUCT USED FOR UNKNOWN INDICATION
     Route: 065
  14. SUCRALFATE. [Concomitant]
     Active Substance: SUCRALFATE
     Indication: PRODUCT USED FOR UNKNOWN INDICATION
     Dosage: 1/10 MG/L
     Route: 065
  15. FIRDAPSE [Suspect]
     Active Substance: AMIFAMPRIDINE
     Route: 048
     Dates: start: 2019, end: 2019
  16. PREDNISONE. [Suspect]
     Active Substance: PREDNISONE
     Indication: CROHN^S DISEASE
  17. PRAMIPEXOLE. [Concomitant]
     Active Substance: PRAMIPEXOLE
     Indication: RESTLESS LEGS SYNDROME
     Route: 065
  18. FIORICET [Concomitant]
     Active Substance: ACETAMINOPHEN\BUTALBITAL\CAFFEINE
     Indication: MIGRAINE
     Dosage: 300-50-40 MG
     Route: 065
  19. FIRDAPSE [Suspect]
     Active Substance: AMIFAMPRIDINE
     Indication: MYASTHENIC SYNDROME
     Route: 048
     Dates: start: 20190308
  20. FIRDAPSE [Suspect]
     Active Substance: AMIFAMPRIDINE
     Route: 048
     Dates: start: 2019, end: 2019
  21. FIRDAPSE [Suspect]
     Active Substance: AMIFAMPRIDINE
     Route: 048
     Dates: start: 2019, end: 2019
  22. MELATONIN [Concomitant]
     Active Substance: MELATONIN
     Indication: SUPPLEMENTATION THERAPY
     Dosage: BEFORE BED TIME
     Route: 065
  23. OMEPRAZOLE. [Concomitant]
     Active Substance: OMEPRAZOLE
     Indication: PRODUCT USED FOR UNKNOWN INDICATION
     Route: 065
  24. MAGNESIUM [Concomitant]
     Active Substance: MAGNESIUM
     Indication: PRODUCT USED FOR UNKNOWN INDICATION
     Route: 065
  25. FIRDAPSE [Suspect]
     Active Substance: AMIFAMPRIDINE
     Route: 048
     Dates: start: 2019, end: 2019
  26. FIRDAPSE [Suspect]
     Active Substance: AMIFAMPRIDINE
     Route: 048
     Dates: start: 2019
  27. FIRDAPSE [Suspect]
     Active Substance: AMIFAMPRIDINE
     Route: 048
     Dates: start: 2019
  28. CYCLOBENZAPRINE. [Suspect]
     Active Substance: CYCLOBENZAPRINE
     Indication: NECK PAIN
     Route: 065
  29. IMMUNOGLOBULIN I.V [Suspect]
     Active Substance: HUMAN IMMUNOGLOBULIN G
     Indication: NECK PAIN
     Route: 042
  30. ARMOUR THYROID [Suspect]
     Active Substance: THYROID, PORCINE
     Indication: PRODUCT USED FOR UNKNOWN INDICATION
     Route: 065
  31. PAXIL [Concomitant]
     Active Substance: PAROXETINE HYDROCHLORIDE
     Indication: PRODUCT USED FOR UNKNOWN INDICATION
     Route: 065
  32. LOSARTAN. [Concomitant]
     Active Substance: LOSARTAN
     Indication: HYPERTENSION
     Route: 065
  33. LORATADINE. [Concomitant]
     Active Substance: LORATADINE
     Indication: PRODUCT USED FOR UNKNOWN INDICATION
     Route: 065

REACTIONS (35)
  - Osteoarthritis [Unknown]
  - Hypersomnia [Unknown]
  - Extra dose administered [Unknown]
  - Muscle twitching [Not Recovered/Not Resolved]
  - Neck pain [Unknown]
  - Unevaluable event [Unknown]
  - Intentional product use issue [Unknown]
  - Visual impairment [Unknown]
  - Motor dysfunction [Unknown]
  - Arthralgia [Unknown]
  - Feeling abnormal [Unknown]
  - Diplopia [Unknown]
  - Malaise [Unknown]
  - Drug ineffective [Unknown]
  - Wound infection [Unknown]
  - Musculoskeletal pain [Unknown]
  - Fatigue [Unknown]
  - Dysphonia [Unknown]
  - Haemoglobin decreased [Unknown]
  - Haematochezia [Unknown]
  - Torticollis [Unknown]
  - Discomfort [Unknown]
  - Back pain [Unknown]
  - Gastrointestinal haemorrhage [Unknown]
  - Eye movement disorder [Unknown]
  - Dyspnoea [Unknown]
  - Wound [Unknown]
  - Limb discomfort [Unknown]
  - Hyperthyroidism [Unknown]
  - Restless legs syndrome [Not Recovered/Not Resolved]
  - Fall [Unknown]
  - Chest pain [Unknown]
  - Migraine [Unknown]
  - Feeling cold [Unknown]
  - Insomnia [Unknown]

NARRATIVE: CASE EVENT DATE: 201903
